FAERS Safety Report 23732487 (Version 3)
Quarter: 2024Q3

REPORT INFORMATION
  Report Type: Spontaneous
  Country: US (occurrence: US)
  Receive Date: 20240411
  Receipt Date: 20240731
  Transmission Date: 20241017
  Serious: No
  Sender: SANOFI AVENTIS
  Company Number: US-SA-SAC20240403000639

PATIENT
  Sex: Female

DRUGS (4)
  1. DUPIXENT [Suspect]
     Active Substance: DUPILUMAB
     Indication: Dermatitis atopic
     Dosage: 300 MG, QOW
     Route: 058
     Dates: start: 202302
  2. DUPIXENT [Suspect]
     Active Substance: DUPILUMAB
     Indication: Dermatitis allergic
  3. DUPIXENT [Suspect]
     Active Substance: DUPILUMAB
     Indication: Skin sensitisation
  4. ZYRTEC [Suspect]
     Active Substance: CETIRIZINE HYDROCHLORIDE
     Dosage: UNK

REACTIONS (8)
  - Skin burning sensation [Not Recovered/Not Resolved]
  - Condition aggravated [Unknown]
  - Erythema [Not Recovered/Not Resolved]
  - Condition aggravated [Unknown]
  - Dermatitis atopic [Not Recovered/Not Resolved]
  - Pruritus [Not Recovered/Not Resolved]
  - Product use in unapproved indication [Unknown]
  - Drug effect less than expected [Unknown]
